FAERS Safety Report 7254304-8 (Version None)
Quarter: 2011Q1

REPORT INFORMATION
  Report Type: 
  Country: None (occurrence: None)
  Receive Date: 20110129
  Receipt Date: 20100219
  Transmission Date: 20110831
  Serious: No
  Sender: FDA-Public Use
  Company Number: US-ABBOTT-09P-163-0596872-00

PATIENT
  Sex: Male
  Weight: 149.82 kg

DRUGS (8)
  1. HUMIRA [Suspect]
     Dosage: NOT REPORTED
     Dates: start: 20080401, end: 20090801
  2. LEVAMIR [Concomitant]
     Indication: DIABETES MELLITUS
  3. NOVOLOG [Concomitant]
     Indication: DIABETES MELLITUS
     Dosage: SLIDING SCALE
  4. HUMIRA [Suspect]
     Indication: PSORIATIC ARTHROPATHY
     Route: 058
     Dates: start: 20050101, end: 20071001
  5. ALLOPURINOL [Concomitant]
     Indication: GOUT
     Route: 048
  6. METFORMIN [Concomitant]
     Indication: DIABETES MELLITUS
     Route: 048
  7. HUMIRA [Suspect]
     Dosage: HUMIRA PREFILLED SYRINGE
  8. LISINOPRIL [Concomitant]
     Indication: HYPERTENSION
     Dosage: UNSURE OF STRENGTH
     Route: 048

REACTIONS (6)
  - JOINT SWELLING [None]
  - FEELING HOT [None]
  - ARTHRALGIA [None]
  - MOBILITY DECREASED [None]
  - PSORIATIC ARTHROPATHY [None]
  - PAIN [None]
